FAERS Safety Report 25383559 (Version 3)
Quarter: 2025Q3

REPORT INFORMATION
  Report Type: Report from Study
  Country: GB (occurrence: GB)
  Receive Date: 20250602
  Receipt Date: 20250725
  Transmission Date: 20251021
  Serious: Yes (Life-Threatening, Other)
  Sender: ABBVIE
  Company Number: GB-ABBVIE-6307954

PATIENT
  Age: 21 Year
  Sex: Male

DRUGS (2)
  1. SKYRIZI [Suspect]
     Active Substance: RISANKIZUMAB-RZAA
     Indication: Crohn^s disease
     Dosage: DOSE-1.00 EA,?FORM STRENGTH- 360MG/2.4ML?LAST ADMIN DATE- 2025
     Route: 058
     Dates: start: 20250529
  2. RINVOQ [Suspect]
     Active Substance: UPADACITINIB
     Indication: Product used for unknown indication
     Route: 048
     Dates: start: 20250706

REACTIONS (9)
  - Loss of consciousness [Recovered/Resolved]
  - Adverse drug reaction [Unknown]
  - Incorrect dose administered [Unknown]
  - Dizziness [Unknown]
  - Syncope [Unknown]
  - Cold sweat [Unknown]
  - Pallor [Unknown]
  - Unresponsive to stimuli [Recovered/Resolved]
  - Malaise [Unknown]

NARRATIVE: CASE EVENT DATE: 20250101
